FAERS Safety Report 21122055 (Version 3)
Quarter: 2022Q3

REPORT INFORMATION
  Report Type: Spontaneous
  Country: US (occurrence: US)
  Receive Date: 20220722
  Receipt Date: 20220823
  Transmission Date: 20221026
  Serious: No
  Sender: FDA-Public Use
  Company Number: US-SANOFI-01194261

PATIENT
  Age: 64 Year
  Sex: Female

DRUGS (1)
  1. INSULIN GLARGINE [Suspect]
     Active Substance: INSULIN GLARGINE
     Indication: Diabetes mellitus
     Dosage: 28 IU, QD

REACTIONS (4)
  - Blood glucose increased [Not Recovered/Not Resolved]
  - Blood glucose abnormal [Unknown]
  - Drug ineffective [Unknown]
  - Product quality issue [Unknown]

NARRATIVE: CASE EVENT DATE: 20220718
